FAERS Safety Report 9459243 (Version 2)
Quarter: 2013Q3

REPORT INFORMATION
  Report Type: Spontaneous
  Country: US (occurrence: US)
  Receive Date: 20130814
  Receipt Date: 20130904
  Transmission Date: 20140515
  Serious: Yes (Hospitalization, Other)
  Sender: FDA-Public Use
  Company Number: US-UCBSA-094758

PATIENT
  Age: 77 Year
  Sex: Female

DRUGS (10)
  1. VIMPAT [Suspect]
     Indication: CONVULSION
     Dosage: STRENGTH : 150 MG
  2. GENERIC KEPPRA [Concomitant]
     Indication: CONVULSION
  3. LAMOTRIGINE [Concomitant]
     Indication: CONVULSION
  4. VITAMIN C [Concomitant]
  5. BABY ASPIRIN [Concomitant]
  6. SYMBICORT [Concomitant]
  7. CITALOPRAM [Concomitant]
     Dosage: 10 MG
  8. ZOLPIDEM [Concomitant]
     Dosage: 10 MG AT BED TIME
  9. AMLODIPINE BESYLATE [Concomitant]
     Dosage: 20 MG
  10. ZINC [Concomitant]

REACTIONS (2)
  - Convulsion [Recovered/Resolved]
  - Burns third degree [Recovered/Resolved with Sequelae]
